FAERS Safety Report 7775309-4 (Version None)
Quarter: 2011Q3

REPORT INFORMATION
  Report Type: 
  Country: None (occurrence: None)
  Receive Date: 20110921
  Receipt Date: 20110907
  Transmission Date: 20111222
  Serious: Yes (Other)
  Sender: FDA-Public Use
  Company Number: 2011P1008775

PATIENT
  Age: 55 Year
  Sex: Female
  Weight: 65.7716 kg

DRUGS (3)
  1. ATIVAN [Concomitant]
  2. FENTANYL-75 [Suspect]
     Indication: PANCREATITIS CHRONIC
     Dosage: 2 PATCHES;Q72H, TDER
     Route: 062
     Dates: start: 20110901
  3. ACTIQ [Concomitant]

REACTIONS (1)
  - SARCOIDOSIS [None]
